FAERS Safety Report 4372983-X (Version None)
Quarter: 2004Q2

REPORT INFORMATION
  Report Type: 
  Country: None (occurrence: None)
  Receive Date: 20040603
  Receipt Date: 20040513
  Transmission Date: 20050107
  Serious: Yes (Other)
  Sender: FDA-Public Use
  Company Number: USA040567508

PATIENT
  Age: 45 Year
  Sex: Female

DRUGS (1)
  1. PROZAC [Suspect]
     Dosage: 20 MG/1 DAY
     Dates: start: 19930101

REACTIONS (1)
  - BREAST CANCER FEMALE [None]
